FAERS Safety Report 6165436-X (Version None)
Quarter: 2009Q2

REPORT INFORMATION
  Report Type: 
  Country: None (occurrence: None)
  Receive Date: 20090423
  Receipt Date: 20090225
  Transmission Date: 20091009
  Serious: Yes (Hospitalization)
  Sender: FDA-Public Use
  Company Number: GB-ROCHE-628137

PATIENT
  Sex: Female

DRUGS (6)
  1. CAPECITABINE [Suspect]
     Route: 065
     Dates: start: 20080730
  2. ERLOTINIB [Suspect]
     Route: 065
     Dates: start: 20080730
  3. BEVACIZUMAB [Suspect]
     Route: 065
     Dates: start: 20080730
  4. GEMCITABINE [Suspect]
     Route: 065
     Dates: start: 20080730
  5. LANSOPRAZOLE [Concomitant]
  6. TINZAPARIN [Concomitant]

REACTIONS (1)
  - STENT OCCLUSION [None]
